FAERS Safety Report 7911478-0 (Version None)
Quarter: 2011Q4

REPORT INFORMATION
  Report Type: 
  Country: None (occurrence: None)
  Receive Date: 20111114
  Receipt Date: 20111031
  Transmission Date: 20120403
  Serious: Yes (Hospitalization)
  Sender: FDA-Public Use
  Company Number: CA-MYLANLABS-2011S1022857

PATIENT
  Age: 15 Month
  Sex: Male

DRUGS (2)
  1. CARBOPLATIN [Suspect]
     Indication: BRAIN NEOPLASM MALIGNANT
     Route: 065
  2. THIOTEPA [Suspect]
     Indication: BRAIN NEOPLASM MALIGNANT
     Route: 065

REACTIONS (1)
  - LEUKOENCEPHALOPATHY [None]
